FAERS Safety Report 9159376 (Version 1)
Quarter: 2013Q1

REPORT INFORMATION
  Report Type: Spontaneous
  Country: US (occurrence: None)
  Receive Date: 20130312
  Receipt Date: 20130312
  Transmission Date: 20140127
  Serious: Yes (Hospitalization)
  Sender: FDA-Public Use
  Company Number: None

PATIENT
  Age: 89 Year
  Sex: Male

DRUGS (19)
  1. XARELTO [Suspect]
     Indication: ATRIAL FIBRILLATION
  2. VITAMIN C [Concomitant]
  3. VIT D3 [Concomitant]
  4. VITAMIN B12 [Concomitant]
  5. EVENING PRIMROSE OIL [Concomitant]
  6. FERROUS SULFATE [Concomitant]
  7. FINASTERIDE [Concomitant]
  8. FLAXSEED OIL [Concomitant]
  9. PREVACID [Concomitant]
  10. SYNTHROID [Concomitant]
  11. LOSARTAN [Concomitant]
  12. MAG-OX [Concomitant]
  13. NIACIN [Concomitant]
  14. OMEGA-3 [Concomitant]
  15. PROPAFENONE [Concomitant]
  16. SIMVASTATIN [Concomitant]
  17. FLOMAX [Concomitant]
  18. VITAMIN E [Concomitant]
  19. UBIQUINONE [Concomitant]

REACTIONS (4)
  - Gastritis erosive [None]
  - Diverticulum [None]
  - Haemoglobin decreased [None]
  - Haematocrit decreased [None]
